FAERS Safety Report 8348787-X (Version None)
Quarter: 2012Q2

REPORT INFORMATION
  Report Type: 
  Country: None (occurrence: None)
  Receive Date: 20120508
  Receipt Date: 20120430
  Transmission Date: 20120825
  Serious: Yes (Hospitalization)
  Sender: FDA-Public Use
  Company Number: 2012HGS-003409

PATIENT
  Age: 54 Year
  Sex: Female
  Weight: 77.1115 kg

DRUGS (22)
  1. VITAMIN C (ASCORBIC ACID) (ASCORBIC ACID) [Concomitant]
  2. LIPITOR [Concomitant]
  3. LEXAPRO (ESCITALOPRAM OXALATE) (ESCITALOPRAM OXALATE) [Concomitant]
  4. XANAX (ALPRAZOLAM) (ALAPRAZOLAM) [Concomitant]
  5. GLYBURIDE (GLIBENCLAMIDE) (GLIBENCALMIDE) [Concomitant]
  6. BENADRYL [Concomitant]
  7. VITAMIN E (TOCOPHEROL) (TOCOPHEROL) [Concomitant]
  8. PROTONIX (PANTOPRAZOLE SODIUM SESQUIHYDRATE) (PANTOPRAZOLE SODIUM SESQ [Concomitant]
  9. PREDNISONE [Concomitant]
  10. HYDROXYCHLOROQUINE SULFATE [Concomitant]
  11. GABAPENTIN [Concomitant]
  12. DULCOLAX (BISACODYL) (BISACODYL) [Concomitant]
  13. OXYCODONE HCL [Concomitant]
  14. VENTOLIN (SALBUTAMOL) (SALBUTAMOL) [Concomitant]
  15. BENADRYL (DIPHENNHYDRAMINE HYDROCHLORIDE) (DIPHENHYDRAMINE HYDROCHLORI [Concomitant]
  16. BENLYSTA [Suspect]
     Indication: SYSTEMIC LUPUS ERYTHEMATOSUS
     Dosage: 1 IN 14 D, INTRAVENOUS DRIP
     Route: 041
     Dates: start: 20120329
  17. VITAMIN D (ERGOCALCIFEROL) (ERGOCCALCIFEROL) [Concomitant]
  18. RAMIPRIL [Concomitant]
  19. ASPIRIN [Concomitant]
  20. EFFIENT (PRASUGREL HYDROCHLORIDE) (PRASUGREL HYDROCHLORIDE) [Concomitant]
  21. BIOTIN (BIOTIN) (BIOTIN) [Concomitant]
  22. DILTIAZEM (DILTIAZEM) (DILTAZEM) [Concomitant]

REACTIONS (7)
  - BACK PAIN [None]
  - FATIGUE [None]
  - SYNCOPE [None]
  - PRESYNCOPE [None]
  - FALL [None]
  - HEAD INJURY [None]
  - PAIN IN EXTREMITY [None]
